FAERS Safety Report 14237822 (Version 3)
Quarter: 2018Q1

REPORT INFORMATION
  Report Type: Spontaneous
  Country: IN (occurrence: IN)
  Receive Date: 20171130
  Receipt Date: 20180105
  Transmission Date: 20180508
  Serious: Yes (Death, Other)
  Sender: FDA-Public Use
  Company Number: IN-ABBVIE-17S-078-2176398-00

PATIENT
  Age: 1 Day
  Sex: Female
  Weight: 2.12 kg

DRUGS (8)
  1. PIPZO [Concomitant]
     Indication: NEONATAL RESPIRATORY DISTRESS SYNDROME
  2. SURVANTA [Suspect]
     Active Substance: BERACTANT
     Indication: ACUTE RESPIRATORY DISTRESS SYNDROME
     Dosage: SINGLE
     Route: 039
     Dates: start: 20170622
  3. IVF [Concomitant]
     Indication: PRODUCT USED FOR UNKNOWN INDICATION
     Route: 065
  4. AMIRA [Concomitant]
     Active Substance: MOCLOBEMIDE
     Indication: PRODUCT USED FOR UNKNOWN INDICATION
  5. AMIRA [Concomitant]
     Active Substance: MOCLOBEMIDE
     Indication: NEONATAL RESPIRATORY DISTRESS SYNDROME
  6. AMIRA [Concomitant]
     Active Substance: MOCLOBEMIDE
     Indication: PROTHROMBIN TIME
     Route: 042
     Dates: start: 20170622, end: 20170623
  7. PIPZO [Concomitant]
     Indication: PROTHROMBIN TIME
     Route: 042
     Dates: start: 20170622, end: 20170623
  8. PIPZO [Concomitant]
     Indication: PRODUCT USED FOR UNKNOWN INDICATION

REACTIONS (1)
  - Pulmonary haemorrhage [Fatal]

NARRATIVE: CASE EVENT DATE: 20170623
